FAERS Safety Report 17201510 (Version 1)
Quarter: 2019Q4

REPORT INFORMATION
  Report Type: Spontaneous
  Country: US (occurrence: US)
  Receive Date: 20191203
  Receipt Date: 20191203
  Transmission Date: 20200122
  Serious: Yes (Hospitalization)
  Sender: FDA-Public Use
  Company Number: None

PATIENT
  Age: 61 Year
  Sex: Female
  Weight: 56.7 kg

DRUGS (3)
  1. BENDAMUSTINE HYDROCHLORIDE. [Suspect]
     Active Substance: BENDAMUSTINE HYDROCHLORIDE
     Dates: end: 20131008
  2. VELCADE [Suspect]
     Active Substance: BORTEZOMIB
     Dates: end: 20131017
  3. RITUXIMAB. [Suspect]
     Active Substance: RITUXIMAB
     Dates: end: 20150910

REACTIONS (2)
  - Lung neoplasm malignant [None]
  - Tobacco user [None]

NARRATIVE: CASE EVENT DATE: 20160506
